FAERS Safety Report 8438966-5 (Version None)
Quarter: 2012Q2

REPORT INFORMATION
  Report Type: 
  Country: None (occurrence: None)
  Receive Date: 20120615
  Receipt Date: 20120607
  Transmission Date: 20120825
  Serious: Yes (Hospitalization, Other)
  Sender: FDA-Public Use
  Company Number: AU-CELGENEUS-008-C5013-11112406

PATIENT
  Sex: Male
  Weight: 60 kg

DRUGS (4)
  1. LENALIDOMIDE [Suspect]
     Dosage: 7.5 MILLIGRAM
     Route: 048
     Dates: start: 20111109, end: 20111116
  2. LENALIDOMIDE [Suspect]
     Dosage: 2.5 MILLIGRAM
     Route: 048
     Dates: start: 20110523
  3. OMEPRAZOLE [Concomitant]
     Indication: GASTRITIS
     Dosage: 20 MILLIGRAM
     Route: 048
     Dates: start: 20010101
  4. OMEPRAZOLE [Concomitant]
     Dosage: 40 MILLIGRAM
     Route: 041
     Dates: start: 20111130

REACTIONS (2)
  - ANAEMIA HAEMOLYTIC AUTOIMMUNE [None]
  - THROMBOCYTOPENIA [None]
